FAERS Safety Report 18254404 (Version 2)
Quarter: 2020Q4

REPORT INFORMATION
  Report Type: Spontaneous
  Country: IT (occurrence: IT)
  Receive Date: 20200910
  Receipt Date: 20201002
  Transmission Date: 20210113
  Serious: Yes (Other)
  Sender: FDA-Public Use
  Company Number: IT-MYLANLABS-2020M1076698

PATIENT
  Age: 24 Year
  Sex: Male

DRUGS (4)
  1. OMALIZUMAB. [Suspect]
     Active Substance: OMALIZUMAB
     Indication: VERNAL KERATOCONJUNCTIVITIS
     Dosage: 300 MILLIGRAM, Q28D (300 MG, Q4W)
     Route: 058
     Dates: start: 201703, end: 201809
  2. PREDNISONE. [Suspect]
     Active Substance: PREDNISONE
     Indication: VERNAL KERATOCONJUNCTIVITIS
     Dosage: 5 MILLIGRAM, QD (5 MG, QD)
     Route: 048
  3. PREDNISONE. [Suspect]
     Active Substance: PREDNISONE
     Dosage: 10 MILLIGRAM, QD (5 MG, BID)
     Route: 048
  4. PREDNISONE. [Suspect]
     Active Substance: PREDNISONE
     Indication: VERNAL KERATOCONJUNCTIVITIS
     Dosage: UNK
     Route: 061

REACTIONS (2)
  - Product use in unapproved indication [Unknown]
  - Vernal keratoconjunctivitis [Unknown]
